FAERS Safety Report 25869045 (Version 1)
Quarter: 2025Q4

REPORT INFORMATION
  Report Type: Spontaneous
  Country: US (occurrence: US)
  Receive Date: 20251001
  Receipt Date: 20251001
  Transmission Date: 20260117
  Serious: Yes (Other)
  Sender: RECKITT BENCKISER
  Company Number: US-INDIVIOR EUROPE LIMITED-INDV-156303-2024

PATIENT
  Age: 0 Year
  Sex: Female
  Weight: 3.175 kg

DRUGS (4)
  1. SUBOXONE [Suspect]
     Active Substance: BUPRENORPHINE HYDROCHLORIDE\NALOXONE HYDROCHLORIDE
     Indication: Back pain
     Dosage: 8 MILLIGRAM, TWO TO THREE TIMES A DAY (DRUG EXPOSURE IN UTERO)
     Route: 064
     Dates: start: 202008, end: 202009
  2. SUBOXONE [Suspect]
     Active Substance: BUPRENORPHINE HYDROCHLORIDE\NALOXONE HYDROCHLORIDE
     Dosage: 8 MILLIGRAM, TWO TO THREE TIMES A DAY (DRUG EXPOSURE VIA BREAST MILK)
     Route: 063
     Dates: start: 202105, end: 20210830
  3. SUBOXONE [Suspect]
     Active Substance: BUPRENORPHINE HYDROCHLORIDE\NALOXONE HYDROCHLORIDE
     Indication: Back pain
     Dosage: 8 MILLIGRAM, TWO TO THREE TIMES A DAY (DRUG EXPOSURE IN UTERO)
     Route: 064
     Dates: start: 202009, end: 20210516
  4. SUBOXONE [Suspect]
     Active Substance: BUPRENORPHINE HYDROCHLORIDE\NALOXONE HYDROCHLORIDE
     Dosage: 8 MILLIGRAM, TWO TO THREE TIMES A DAY (DRUG EXPOSURE VIA BREASTMILK)
     Route: 063
     Dates: start: 202105, end: 202105

REACTIONS (3)
  - Drug withdrawal syndrome neonatal [Unknown]
  - Exposure via breast milk [Recovered/Resolved]
  - Foetal exposure during pregnancy [Recovered/Resolved]

NARRATIVE: CASE EVENT DATE: 20200801
